FAERS Safety Report 5367125-8 (Version None)
Quarter: 2007Q2

REPORT INFORMATION
  Report Type: 
  Country: None (occurrence: None)
  Receive Date: 20070622
  Receipt Date: 20060724
  Transmission Date: 20071010
  Serious: No
  Sender: FDA-Public Use
  Company Number: US-BRISTOL-MYERS SQUIBB COMPANY-13451653

PATIENT
  Age: 79 Year
  Sex: Female
  Weight: 59 kg

DRUGS (5)
  1. SINEMET [Suspect]
     Indication: PARKINSON'S DISEASE
     Dosage: DOSAGE: 25/100 TABLET BY MOUTH FOUR TIMES PER DAY.
     Route: 048
     Dates: start: 19870101
  2. SINEMET CR [Suspect]
     Indication: PARKINSON'S DISEASE
     Dosage: DOSAGE: 50/200 TABLET BY MOUTH FOUR TIMES PER DAY.
     Route: 048
     Dates: start: 19870101
  3. MIRAPEX [Concomitant]
  4. HYDROCODONE BITARTRATE [Concomitant]
  5. XANAX [Concomitant]

REACTIONS (3)
  - EYES SUNKEN [None]
  - PSYCHOTIC DISORDER [None]
  - SWELLING FACE [None]
